FAERS Safety Report 13930128 (Version 1)
Quarter: 2017Q3

REPORT INFORMATION
  Report Type: Spontaneous
  Country: GB (occurrence: GB)
  Receive Date: 20170901
  Receipt Date: 20170901
  Transmission Date: 20171127
  Serious: Yes (Other)
  Sender: FDA-Public Use
  Company Number: GB-MYLANLABS-M-EU-2017050001

PATIENT
  Sex: Female

DRUGS (2)
  1. EFUDIX 5% CREAM [Suspect]
     Active Substance: FLUOROURACIL
     Indication: BASAL CELL CARCINOMA
     Dosage: SEPARATE DOSAGES/INTERVAL: 2 IN 1 DAYS
     Route: 061
     Dates: start: 2014, end: 20170418
  2. AMOXICILLIN. [Concomitant]
     Active Substance: AMOXICILLIN
     Indication: PRODUCT USED FOR UNKNOWN INDICATION

REACTIONS (12)
  - Lower respiratory tract infection [Recovered/Resolved]
  - Tremor [Unknown]
  - Chills [Recovered/Resolved]
  - Dermatitis [Unknown]
  - Skin lesion [None]
  - Influenza like illness [Unknown]
  - Pyrexia [Recovered/Resolved]
  - Scar [Unknown]
  - Pain of skin [Recovered/Resolved]
  - Oral mucosal blistering [Recovered/Resolved]
  - Inflammation [None]
  - Seborrhoeic keratosis [None]

NARRATIVE: CASE EVENT DATE: 2017
